FAERS Safety Report 17241684 (Version 1)
Quarter: 2019Q4

REPORT INFORMATION
  Report Type: Spontaneous
  Country: US (occurrence: US)
  Receive Date: 20191212
  Receipt Date: 20191212
  Transmission Date: 20200122
  Serious: No
  Sender: FDA-Public Use
  Company Number: None

PATIENT
  Sex: Female

DRUGS (1)
  1. REMICADE [Suspect]
     Active Substance: INFLIXIMAB
     Indication: PSORIATIC ARTHROPATHY
     Dosage: ?          OTHER STRENGTH:100MG/VL;OTHER FREQUENCY:EVERY 6 WEEKS;?
     Route: 042
     Dates: start: 201907

REACTIONS (5)
  - Confusional state [None]
  - Arthralgia [None]
  - Fatigue [None]
  - Chills [None]
  - Decreased appetite [None]
